FAERS Safety Report 24765371 (Version 3)
Quarter: 2025Q1

REPORT INFORMATION
  Report Type: Spontaneous
  Country: US (occurrence: US)
  Receive Date: 20241223
  Receipt Date: 20250214
  Transmission Date: 20250409
  Serious: Yes (Other)
  Sender: BAYER HEALTHCARE LLC
  Company Number: US-BAYER-2024A176021

PATIENT
  Age: 66 Year
  Sex: Female

DRUGS (2)
  1. AFRIN ORIGINAL NASAL [Suspect]
     Active Substance: OXYMETAZOLINE HYDROCHLORIDE
     Indication: Sinusitis
     Route: 055
     Dates: start: 20240422, end: 20240422
  2. PREDNISOLONE [Suspect]
     Active Substance: PREDNISOLONE

REACTIONS (13)
  - Angle closure glaucoma [None]
  - Blindness unilateral [Recovering/Resolving]
  - Intraocular pressure increased [Recovered/Resolved]
  - Uveitis [None]
  - Optic nerve injury [None]
  - Vomiting [Not Recovered/Not Resolved]
  - Nausea [Not Recovered/Not Resolved]
  - Eye inflammation [None]
  - Eye pain [None]
  - Visual impairment [None]
  - Pupillary block [None]
  - Optic nerve injury [None]
  - Intraocular pressure increased [Recovered/Resolved]

NARRATIVE: CASE EVENT DATE: 20240423
